FAERS Safety Report 6151140-0 (Version None)
Quarter: 2009Q2

REPORT INFORMATION
  Report Type: 
  Country: None (occurrence: None)
  Receive Date: 20090410
  Receipt Date: 20090402
  Transmission Date: 20091009
  Serious: Yes (Other)
  Sender: FDA-Public Use
  Company Number: US-JNJFOC-20090401339

PATIENT
  Sex: Female
  Weight: 63.5 kg

DRUGS (5)
  1. DURAGESIC-100 [Suspect]
     Route: 062
  2. DURAGESIC-100 [Suspect]
     Indication: BACK PAIN
     Route: 062
  3. PHENERGAN [Concomitant]
     Indication: NAUSEA
     Route: 065
  4. LORTAB [Concomitant]
     Indication: BACK PAIN
     Route: 065
  5. TIZANIDINE HCL [Concomitant]
     Indication: MUSCLE DISORDER
     Route: 065

REACTIONS (8)
  - DRUG DOSE OMISSION [None]
  - ERYTHEMA [None]
  - HYPOTHYROIDISM [None]
  - INADEQUATE ANALGESIA [None]
  - INCORRECT DRUG ADMINISTRATION DURATION [None]
  - OEDEMA PERIPHERAL [None]
  - STREPTOCOCCAL INFECTION [None]
  - WITHDRAWAL SYNDROME [None]
